FAERS Safety Report 8073487-3 (Version None)
Quarter: 2012Q1

REPORT INFORMATION
  Report Type: 
  Country: None (occurrence: None)
  Receive Date: 20120126
  Receipt Date: 20120126
  Transmission Date: 20120608
  Serious: Yes (Life-Threatening)
  Sender: FDA-Public Use
  Company Number: None

PATIENT
  Age: 46 Year
  Sex: Female
  Weight: 57 kg

DRUGS (2)
  1. WARFARIN SODIUM [Suspect]
     Indication: DEEP VEIN THROMBOSIS
     Dosage: 5MG
     Route: 048
     Dates: start: 20120118, end: 20120122
  2. WARFARIN SODIUM [Concomitant]
     Dosage: 2.5MG
     Route: 048
     Dates: start: 20120122, end: 20120124

REACTIONS (1)
  - SUBARACHNOID HAEMORRHAGE [None]
